FAERS Safety Report 25448968 (Version 2)
Quarter: 2025Q3

REPORT INFORMATION
  Report Type: Spontaneous
  Country: CA (occurrence: CA)
  Receive Date: 20250618
  Receipt Date: 20250915
  Transmission Date: 20251020
  Serious: Yes (Other)
  Sender: BAUSCH AND LOMB
  Company Number: CA-MLMSERVICE-20250602-PI528237-00117-4

PATIENT
  Age: 68 Year
  Sex: Male

DRUGS (21)
  1. HYDROCORTISONE [Suspect]
     Active Substance: HYDROCORTISONE
     Indication: Product used for unknown indication
     Route: 065
     Dates: start: 20230421
  2. DEXAMETHASONE [Suspect]
     Active Substance: DEXAMETHASONE
     Indication: Eosinophilia
     Route: 048
     Dates: start: 20231004, end: 2023
  3. DEXAMETHASONE [Suspect]
     Active Substance: DEXAMETHASONE
     Indication: Vasospasm
  4. AMLODIPINE [Concomitant]
     Active Substance: AMLODIPINE BESYLATE
     Indication: Hypertension
  5. CANDESARTAN [Concomitant]
     Active Substance: CANDESARTAN
     Indication: Product used for unknown indication
     Dates: start: 202304
  6. BISOPROLOL [Concomitant]
     Active Substance: BISOPROLOL
     Indication: Product used for unknown indication
     Dates: start: 202304
  7. ROSUVASTATIN [Concomitant]
     Active Substance: ROSUVASTATIN
     Indication: Product used for unknown indication
     Dates: start: 202304
  8. NITROGLYCERIN [Concomitant]
     Active Substance: NITROGLYCERIN
     Indication: Electrocardiogram ST segment elevation
     Route: 060
     Dates: start: 20230421
  9. NITROGLYCERIN [Concomitant]
     Active Substance: NITROGLYCERIN
     Dates: start: 20231006
  10. ASPIRIN [Concomitant]
     Active Substance: ASPIRIN
     Indication: Eosinophilia
     Dates: start: 2023
  11. ASPIRIN [Concomitant]
     Active Substance: ASPIRIN
     Indication: Vasospasm
  12. TICAGRELOR [Concomitant]
     Active Substance: TICAGRELOR
     Indication: Eosinophilia
     Dates: start: 2023
  13. TICAGRELOR [Concomitant]
     Active Substance: TICAGRELOR
     Indication: Vasospasm
  14. SYMBICORT [Concomitant]
     Active Substance: BUDESONIDE\FORMOTEROL FUMARATE DIHYDRATE
     Indication: Eosinophilia
     Dates: start: 2023
  15. SYMBICORT [Concomitant]
     Active Substance: BUDESONIDE\FORMOTEROL FUMARATE DIHYDRATE
     Indication: Vasospasm
  16. COLCHICINE [Concomitant]
     Active Substance: COLCHICINE
     Indication: Eosinophilia
     Dates: start: 2023
  17. COLCHICINE [Concomitant]
     Active Substance: COLCHICINE
     Indication: Vasospasm
  18. ERGOCALCIFEROL [Concomitant]
     Active Substance: ERGOCALCIFEROL
     Indication: Eosinophilia
     Dates: start: 2023
  19. ERGOCALCIFEROL [Concomitant]
     Active Substance: ERGOCALCIFEROL
     Indication: Vasospasm
  20. LORATADINE [Concomitant]
     Active Substance: LORATADINE
     Indication: Kounis syndrome
     Dates: start: 2023
  21. KETOTIFEN [Concomitant]
     Active Substance: KETOTIFEN
     Indication: Kounis syndrome
     Dates: start: 2023

REACTIONS (1)
  - Anaphylactoid reaction [Unknown]

NARRATIVE: CASE EVENT DATE: 20231006
